FAERS Safety Report 8343883-5 (Version None)
Quarter: 2012Q2

REPORT INFORMATION
  Report Type: 
  Country: None (occurrence: None)
  Receive Date: 20120508
  Receipt Date: 20101006
  Transmission Date: 20120825
  Serious: Yes (Hospitalization, Other)
  Sender: FDA-Public Use
  Company Number: US-BAYER-201034845NA

PATIENT
  Age: 28 Year
  Sex: Female
  Weight: 77.098 kg

DRUGS (11)
  1. YASMIN [Suspect]
     Indication: PREMENSTRUAL SYNDROME
  2. LEVAQUIN [Concomitant]
     Indication: BRONCHITIS
  3. YAZ [Suspect]
     Indication: ORAL CONTRACEPTION
  4. PREVACID [Concomitant]
     Route: 048
  5. YASMIN [Suspect]
     Indication: ORAL CONTRACEPTION
  6. TOPROL-XL [Concomitant]
     Indication: HYPERTENSION
     Route: 048
  7. DROSPIRENONE AND ETHINYL ESTRADIOL [Suspect]
  8. YAZ [Suspect]
     Indication: PREMENSTRUAL SYNDROME
  9. HYDROCHLOROTHIAZIDE [Concomitant]
     Indication: FLUID RETENTION
     Route: 048
  10. HERBAL PREPARATION [Concomitant]
     Indication: BRONCHITIS
  11. ZANTAC [Concomitant]
     Route: 048

REACTIONS (5)
  - GALLBLADDER DISORDER [None]
  - CHOLELITHIASIS [None]
  - HEPATIC FUNCTION ABNORMAL [None]
  - CHOLECYSTITIS CHRONIC [None]
  - BILIARY DYSKINESIA [None]
